FAERS Safety Report 22067807 (Version 1)
Quarter: 2023Q1

REPORT INFORMATION
  Report Type: Spontaneous
  Country: FI (occurrence: FI)
  Receive Date: 20230307
  Receipt Date: 20230307
  Transmission Date: 20230417
  Serious: Yes (Other)
  Sender: FDA-Public Use
  Company Number: FI-NOVOPROD-1031396

PATIENT
  Age: 59 Year
  Sex: Female

DRUGS (4)
  1. NOVORAPID [Suspect]
     Active Substance: INSULIN ASPART
     Indication: Type 1 diabetes mellitus
     Dosage: 8 IU, QID
     Route: 058
  2. NOVORAPID [Suspect]
     Active Substance: INSULIN ASPART
     Dosage: UNK, 4 IU, QD (AFTER BREAKFAST)
     Route: 058
     Dates: start: 20220220
  3. NOVORAPID [Suspect]
     Active Substance: INSULIN ASPART
     Dosage: UNK+6 IU, QD (AFTER EATING)
     Route: 058
     Dates: start: 20220215
  4. LANTUS [Concomitant]
     Active Substance: INSULIN GLARGINE
     Indication: Type 1 diabetes mellitus
     Dosage: UNK

REACTIONS (4)
  - Hypoglycaemic unconsciousness [Recovered/Resolved]
  - Device issue [Unknown]
  - Hypoglycaemia [Recovered/Resolved]
  - Blood glucose decreased [Unknown]

NARRATIVE: CASE EVENT DATE: 20230215
